FAERS Safety Report 8142308-2 (Version None)
Quarter: 2012Q1

REPORT INFORMATION
  Report Type: 
  Country: None (occurrence: None)
  Receive Date: 20120103
  Receipt Date: 20110916
  Transmission Date: 20120608
  Serious: No
  Sender: FDA-Public Use
  Company Number: AE-2011-001574

PATIENT
  Age: 39 Year
  Sex: Female
  Weight: 61.6 kg

DRUGS (3)
  1. PEGASYS [Concomitant]
  2. RIBAPAK (RIBAVIRIN) [Concomitant]
  3. INCIVEK [Suspect]
     Dates: start: 20110801

REACTIONS (1)
  - PRURITUS GENERALISED [None]
